FAERS Safety Report 8599367-2 (Version None)
Quarter: 2012Q3

REPORT INFORMATION
  Report Type: 
  Country: None (occurrence: None)
  Receive Date: 20120816
  Receipt Date: 20120814
  Transmission Date: 20120928
  Serious: No
  Sender: FDA-Public Use
  Company Number: US-ASTRAZENECA-2012SE57414

PATIENT
  Age: 30 Year
  Sex: Male
  Weight: 95.3 kg

DRUGS (2)
  1. SEROQUEL XR [Suspect]
     Route: 048
     Dates: start: 20090101
  2. ZOLOFT [Suspect]
     Route: 065

REACTIONS (4)
  - ARTHRALGIA [None]
  - GAIT DISTURBANCE [None]
  - BACK DISORDER [None]
  - BACK PAIN [None]
